FAERS Safety Report 13550963 (Version 1)
Quarter: 2017Q2

REPORT INFORMATION
  Report Type: Spontaneous
  Country: DE (occurrence: DE)
  Receive Date: 20170516
  Receipt Date: 20170516
  Transmission Date: 20170830
  Serious: Yes (Other)
  Sender: FDA-Public Use
  Company Number: DE-BAYER-2017-088696

PATIENT
  Age: 47 Year
  Sex: Female

DRUGS (1)
  1. CIPROFLOXACIN. [Suspect]
     Active Substance: CIPROFLOXACIN
     Dosage: 3 DF, UNK
     Dates: start: 2002

REACTIONS (3)
  - Adverse drug reaction [None]
  - Pain [None]
  - Toxicity to various agents [None]
